FAERS Safety Report 15630426 (Version 2)
Quarter: 2018Q4

REPORT INFORMATION
  Report Type: Report from Study
  Country: US (occurrence: US)
  Receive Date: 20181118
  Receipt Date: 20181126
  Transmission Date: 20190205
  Serious: Yes (Hospitalization, Other)
  Sender: FDA-Public Use
  Company Number: US-BRISTOL-MYERS SQUIBB COMPANY-BMS-2018-107233

PATIENT
  Age: 71 Year
  Sex: Male
  Weight: 83.8 kg

DRUGS (3)
  1. NIVOLUMAB [Suspect]
     Active Substance: NIVOLUMAB
     Indication: NEOPLASM
     Dosage: 480 MG, UNK
     Route: 042
     Dates: start: 20180312, end: 20180827
  2. IPILIMUMAB [Suspect]
     Active Substance: IPILIMUMAB
     Indication: NEOPLASM
     Dosage: 82 MG, UNK
     Route: 042
     Dates: start: 20180312, end: 20180910
  3. HYDROCORTISONE. [Concomitant]
     Active Substance: HYDROCORTISONE
     Indication: PRODUCT USED FOR UNKNOWN INDICATION
     Route: 065

REACTIONS (10)
  - Muscular weakness [Recovering/Resolving]
  - Atrial fibrillation [Recovering/Resolving]
  - Diarrhoea [Recovered/Resolved]
  - Peripheral sensory neuropathy [Recovering/Resolving]
  - Fall [Recovering/Resolving]
  - Colitis [Recovering/Resolving]
  - Fatigue [Recovering/Resolving]
  - Pneumonitis [Recovering/Resolving]
  - Spinal fracture [Recovering/Resolving]
  - Hypophosphataemia [Recovering/Resolving]

NARRATIVE: CASE EVENT DATE: 20180920
